FAERS Safety Report 14032357 (Version 2)
Quarter: 2017Q4

REPORT INFORMATION
  Report Type: Spontaneous
  Country: US (occurrence: US)
  Receive Date: 20171002
  Receipt Date: 20171124
  Transmission Date: 20180321
  Serious: No
  Sender: FDA-Public Use
  Company Number: US-PFIZER INC-2017422221

PATIENT
  Age: 33 Year
  Sex: Female
  Weight: 53.52 kg

DRUGS (4)
  1. ADVIL [Suspect]
     Active Substance: IBUPROFEN
     Dosage: 1 DF, AS NEEDED(OVER THE PAST WEEK AND A HALF TOOK A TOTAL OF 5 ADVIL LIQUIGELS MINIS)
     Route: 048
     Dates: start: 201709
  2. HYDROCODONE [Concomitant]
     Active Substance: HYDROCODONE
     Dosage: 1 DF, 2X/DAY (TOOK A ONE HYDROCODONE IN THE MORNING AND ONE AT BEDTIME)
  3. VITAMIN C [Concomitant]
     Active Substance: ASCORBIC ACID
     Indication: VITAMIN SUPPLEMENTATION
     Dosage: 250 MG, 1X/DAY ^BREAKS THEM IN HALF^
  4. MELATONIN [Concomitant]
     Active Substance: MELATONIN
     Indication: INSOMNIA
     Dosage: 5 MG, 1X/DAY (AT NIGHT)

REACTIONS (6)
  - Choking sensation [Recovered/Resolved]
  - Product shape issue [Recovered/Resolved]
  - Product use complaint [Recovered/Resolved]
  - Foreign body in respiratory tract [Recovered/Resolved]
  - Pain [Recovered/Resolved]
  - Dysphagia [Recovered/Resolved]

NARRATIVE: CASE EVENT DATE: 201709
